FAERS Safety Report 15538029 (Version 2)
Quarter: 2018Q4

REPORT INFORMATION
  Report Type: Spontaneous
  Country: US (occurrence: US)
  Receive Date: 20181022
  Receipt Date: 20181226
  Transmission Date: 20190205
  Serious: Yes (Hospitalization, Other)
  Sender: FDA-Public Use
  Company Number: US-SMITH AND NEPHEW, INC-2018SMT00125

PATIENT
  Age: 75 Year
  Sex: Female
  Weight: 64.4 kg

DRUGS (17)
  1. LANTUS SOLOSTAR U-100 INSULIN [Concomitant]
     Dosage: 24 UNITS, 1X/DAY WITH BREAKFAST
     Route: 058
     Dates: start: 20180427
  2. REGRANEX [Suspect]
     Active Substance: BECAPLERMIN
     Indication: DIABETIC ULCER
     Dosage: SMALL AMOUNT ON A Q-TIP, 1X/DAY
     Route: 061
     Dates: start: 201712, end: 201808
  3. PLAVIX [Concomitant]
     Active Substance: CLOPIDOGREL BISULFATE
     Dosage: 75 MG, 1X/DAY
     Route: 048
     Dates: start: 20180427
  4. NEURONTIN [Concomitant]
     Active Substance: GABAPENTIN
     Dosage: 100 MG, 1X/DAY AT NIGHT
     Route: 048
     Dates: start: 20180427
  5. CRESTOR [Concomitant]
     Active Substance: ROSUVASTATIN CALCIUM
     Dosage: 5 MG, 1X/DAY AT BEDTIME
     Route: 048
     Dates: start: 20180817
  6. KLOR-CON [Concomitant]
     Active Substance: POTASSIUM CHLORIDE
     Dosage: 10 MEQ, 1X/DAY WITH BREAKFAST
     Route: 048
     Dates: start: 20180815
  7. PRINIVIL [Concomitant]
     Active Substance: LISINOPRIL
     Dosage: 2.5 MG, 1X/DAY
     Route: 048
     Dates: start: 20180427
  8. HUMALOG [Concomitant]
     Active Substance: INSULIN LISPRO
     Dosage: 1-4 UNITS, 3X/DAY
     Route: 058
     Dates: start: 20180427
  9. MEDROL DOSPACK [Concomitant]
     Dosage: 1 TABLETS, 1X/DAY AT BEDTIME
     Dates: start: 20180830
  10. PROTONIX EC [Concomitant]
     Dosage: 1 DOSAGE UNITS, 2X/DAY (ONE IN THE MORNING AND ONE AT BEDTIME)
     Route: 048
     Dates: start: 20180427
  11. TYLENOL ARTHRITIS PAIN [Concomitant]
     Active Substance: ACETAMINOPHEN
     Dosage: 650 MG, 4X/DAY EVERY 6 HOURS
     Route: 048
  12. CALTRATE WITH VITAMIN D [Concomitant]
     Active Substance: CALCIUM CARBONATE\CHOLECALCIFEROL
     Dosage: 1 TABLETS, 2X/DAY WITH MEALS
     Route: 048
  13. ZYRTEC [Concomitant]
     Active Substance: CETIRIZINE HYDROCHLORIDE
     Dosage: 10 MG, 1X/DAY
     Route: 048
  14. VITAMIN E [Concomitant]
     Active Substance: .ALPHA.-TOCOPHEROL
     Dosage: 1000 U, 1X/DAY
     Route: 048
  15. POTASSIUM [Concomitant]
     Active Substance: POTASSIUM
     Dosage: 10 MEQ, 1X/DAY WITH BREAKFAST
     Dates: start: 20180815
  16. VITAMIN B12 [Concomitant]
     Active Substance: CYANOCOBALAMIN
     Dosage: 1000 ?G, 1X/DAY
     Route: 048
  17. LASIX [Concomitant]
     Active Substance: FUROSEMIDE
     Dosage: 40 MG, 1X/DAY
     Route: 048
     Dates: start: 20180815

REACTIONS (39)
  - Urinary tract infection [Unknown]
  - Sepsis [Recovering/Resolving]
  - Wound secretion [Unknown]
  - Lethargy [Recovered/Resolved]
  - Escherichia test positive [Recovered/Resolved]
  - Anxiety [Unknown]
  - Sleep disorder [Unknown]
  - Wound complication [Unknown]
  - Troponin increased [Unknown]
  - Pain in extremity [Unknown]
  - Somnolence [Recovered/Resolved]
  - Pneumonia [Recovered/Resolved]
  - Cellulitis [Unknown]
  - Acute kidney injury [Recovering/Resolving]
  - Rash generalised [Recovering/Resolving]
  - Dizziness [Recovered/Resolved]
  - Hiatus hernia [Unknown]
  - Blood lactic acid increased [Recovered/Resolved]
  - Mitral valve calcification [Unknown]
  - Ventricular hypokinesia [Unknown]
  - Cystocele [Unknown]
  - Staphylococcus test positive [Recovered/Resolved]
  - Pruritus [Unknown]
  - Abdominal pain [Recovered/Resolved]
  - Nervousness [Unknown]
  - Purulent discharge [Unknown]
  - Septic shock [Recovering/Resolving]
  - Pulmonary oedema [Unknown]
  - Abdominal tenderness [Recovered/Resolved]
  - Hypoxia [Recovered/Resolved]
  - Hypomagnesaemia [Recovered/Resolved]
  - Aortic arteriosclerosis [Unknown]
  - Tachycardia [Unknown]
  - Appetite disorder [Recovered/Resolved]
  - Asthenia [Recovered/Resolved]
  - Aortic valve calcification [Unknown]
  - Respiratory failure [Recovered/Resolved]
  - Hyperkalaemia [Recovered/Resolved]
  - Cholelithiasis [Unknown]

NARRATIVE: CASE EVENT DATE: 2018
